FAERS Safety Report 4579638-7 (Version None)
Quarter: 2005Q1

REPORT INFORMATION
  Report Type: 
  Country: None (occurrence: None)
  Receive Date: 20050214
  Receipt Date: 20041129
  Transmission Date: 20050727
  Serious: Yes (Hospitalization, Other)
  Sender: FDA-Public Use
  Company Number: IE-BRISTOL-MYERS SQUIBB COMPANY-12783494

PATIENT
  Age: 25 Year
  Sex: Male

DRUGS (8)
  1. METFORMIN HCL [Suspect]
     Indication: DIABETES MELLITUS
     Dosage: 1000 MG BID REGULAR DOSE, ATTEMPTED SUICIDE BY TAKING 4 DAY'S WORTH AT ONCE
     Route: 048
  2. ATENOLOL [Suspect]
     Route: 048
  3. ACAMPROSATE [Suspect]
     Dosage: 666 MG TID REGULAR DOSE, ATTEMPTED SUICIDE BY TAKING 4 DAY'S WORTH AT ONCE
     Route: 048
     Dates: start: 20030701
  4. ZOPICLONE [Suspect]
     Route: 048
  5. SULPIRID [Suspect]
     Route: 048
  6. VENLAFAXINE HCL [Suspect]
     Route: 048
  7. LAMOTRIGINE [Suspect]
     Route: 048
  8. CLOZARIL [Suspect]
     Route: 048

REACTIONS (5)
  - DIABETES MELLITUS [None]
  - INTENTIONAL MISUSE [None]
  - METABOLIC ACIDOSIS [None]
  - SOMNOLENCE [None]
  - SUICIDE ATTEMPT [None]
